FAERS Safety Report 5307965-4 (Version None)
Quarter: 2007Q2

REPORT INFORMATION
  Report Type: 
  Country: None (occurrence: None)
  Receive Date: 20070426
  Receipt Date: 20070413
  Transmission Date: 20071010
  Serious: Yes (Other)
  Sender: FDA-Public Use
  Company Number: 2007UW07329

PATIENT
  Age: 55 Year
  Sex: Female
  Weight: 57.6 kg

DRUGS (3)
  1. CRESTOR [Suspect]
     Indication: BLOOD CHOLESTEROL INCREASED
     Route: 048
     Dates: start: 20060801, end: 20061101
  2. CRESTOR [Suspect]
     Route: 048
     Dates: start: 20070101
  3. MOBIC [Concomitant]

REACTIONS (5)
  - ABDOMINAL PAIN [None]
  - GASTROOESOPHAGEAL REFLUX DISEASE [None]
  - HAEMORRHOIDS [None]
  - LACTOSE INTOLERANCE [None]
  - RECTAL HAEMORRHAGE [None]
